FAERS Safety Report 4329877-5 (Version None)
Quarter: 2004Q1

REPORT INFORMATION
  Report Type: 
  Country: None (occurrence: None)
  Receive Date: 20040329
  Receipt Date: 20040315
  Transmission Date: 20041129
  Serious: Yes (Hospitalization)
  Sender: FDA-Public Use
  Company Number: FR-JNJFOC-20040303269

PATIENT
  Age: 14 Year
  Sex: Female

DRUGS (1)
  1. RISPERDAL [Suspect]
     Indication: TOURETTE'S DISORDER
     Dosage: IN 1 DAY, ORAL
     Route: 048
     Dates: start: 20030601, end: 20040301

REACTIONS (1)
  - ENTEROCOLITIS HAEMORRHAGIC [None]
